FAERS Safety Report 16830581 (Version 1)
Quarter: 2019Q3

REPORT INFORMATION
  Report Type: Report from Study
  Country: US (occurrence: US)
  Receive Date: 20190920
  Receipt Date: 20190920
  Transmission Date: 20191005
  Serious: Yes (Other)
  Sender: FDA-Public Use
  Company Number: US-EMD SERONO-9117172

PATIENT
  Sex: Female

DRUGS (1)
  1. REBIF [Suspect]
     Active Substance: INTERFERON BETA-1A
     Indication: MULTIPLE SCLEROSIS
     Dosage: REBIF PREFILLED SYRINGE
     Route: 058
     Dates: start: 20170127

REACTIONS (3)
  - Multiple sclerosis [Recovering/Resolving]
  - Emotional distress [Unknown]
  - Tonsillectomy [Recovered/Resolved]

NARRATIVE: CASE EVENT DATE: 2019
